FAERS Safety Report 5062342-9 (Version None)
Quarter: 2006Q3

REPORT INFORMATION
  Report Type: 
  Country: None (occurrence: None)
  Receive Date: 20060726
  Receipt Date: 20060224
  Transmission Date: 20061208
  Serious: Yes (Hospitalization)
  Sender: FDA-Public Use
  Company Number: US-GLAXOSMITHKLINE-A0595106A

PATIENT
  Age: 83 Year
  Sex: Female

DRUGS (3)
  1. FLOVENT [Suspect]
     Indication: ASTHMA
     Dosage: 2PUFF TWICE PER DAY
     Route: 055
  2. COMBIVENT [Concomitant]
     Route: 055
  3. ALBUTEROL + IPRATROPIUM BROMIDE [Concomitant]
     Route: 055

REACTIONS (2)
  - DYSPNOEA [None]
  - LUNG INFECTION [None]
